FAERS Safety Report 7227214-X (Version None)
Quarter: 2011Q1

REPORT INFORMATION
  Report Type: 
  Country: None (occurrence: None)
  Receive Date: 20110111
  Receipt Date: 20110111
  Transmission Date: 20110831
  Serious: Yes (Hospitalization)
  Sender: FDA-Public Use
  Company Number: None

PATIENT
  Sex: Male

DRUGS (1)
  1. NAPROXEN [Suspect]
     Dosage: 500MG 3-4 TIMES PER DAY PO
     Route: 048

REACTIONS (7)
  - ABDOMINAL PAIN UPPER [None]
  - INCORRECT DOSE ADMINISTERED [None]
  - FAECES DISCOLOURED [None]
  - FALL [None]
  - DYSPEPSIA [None]
  - HAEMATEMESIS [None]
  - MUSCULOSKELETAL CHEST PAIN [None]
